FAERS Safety Report 26130927 (Version 1)
Quarter: 2025Q4

REPORT INFORMATION
  Report Type: Spontaneous
  Country: US (occurrence: None)
  Receive Date: 20251207
  Receipt Date: 20251207
  Transmission Date: 20260118
  Serious: No
  Sender: FDA-CTU
  Company Number: None

PATIENT
  Age: 41 Year
  Sex: Female
  Weight: 64.8 kg

DRUGS (4)
  1. PANTOPRAZOLE SODIUM [Suspect]
     Active Substance: PANTOPRAZOLE SODIUM
     Indication: Oesophagitis
     Dosage: ORAL
     Route: 048
     Dates: start: 20251029, end: 20251201
  2. PROTONIX [Concomitant]
     Active Substance: PANTOPRAZOLE SODIUM
  3. 2500mcg Vitamin [Concomitant]
  4. VITAMIN B12 [Concomitant]
     Active Substance: CYANOCOBALAMIN

REACTIONS (5)
  - Depression [None]
  - Suicidal ideation [None]
  - Gastrooesophageal reflux disease [None]
  - Mood altered [None]
  - Affect lability [None]

NARRATIVE: CASE EVENT DATE: 20251117
